FAERS Safety Report 19890000 (Version 1)
Quarter: 2021Q3

REPORT INFORMATION
  Report Type: Spontaneous
  Country: JP (occurrence: JP)
  Receive Date: 20210927
  Receipt Date: 20210927
  Transmission Date: 20211014
  Serious: Yes (Other)
  Sender: FDA-Public Use
  Company Number: JP-ELI_LILLY_AND_COMPANY-JP202108012963

PATIENT
  Age: 11 Year
  Sex: Female
  Weight: 35 kg

DRUGS (2)
  1. HUMALOG [Suspect]
     Active Substance: INSULIN LISPRO
     Indication: TYPE 1 DIABETES MELLITUS
     Dosage: 48 INTERNATIONAL UNIT, DAILY
     Route: 058
  2. BAQSIMI [Suspect]
     Active Substance: GLUCAGON
     Indication: HYPOGLYCAEMIA
     Dosage: UNK
     Route: 045
     Dates: start: 20210619

REACTIONS (3)
  - Hypoglycaemia [Recovered/Resolved]
  - Rhinalgia [Recovered/Resolved]
  - Incorrect dose administered [Unknown]

NARRATIVE: CASE EVENT DATE: 20210619
